FAERS Safety Report 6848593-9 (Version None)
Quarter: 2010Q3

REPORT INFORMATION
  Report Type: 
  Country: None (occurrence: None)
  Receive Date: 20100716
  Receipt Date: 20100712
  Transmission Date: 20110219
  Serious: Yes (Other)
  Sender: FDA-Public Use
  Company Number: JP-BRISTOL-MYERS SQUIBB COMPANY-15188691

PATIENT
  Age: 7 Decade
  Sex: Male

DRUGS (2)
  1. TAXOL [Suspect]
     Indication: GASTRIC CANCER
     Route: 041
     Dates: start: 20100702
  2. ALCOHOL [Suspect]

REACTIONS (2)
  - CONFUSIONAL STATE [None]
  - DEPRESSED MOOD [None]
